FAERS Safety Report 25556426 (Version 1)
Quarter: 2025Q3

REPORT INFORMATION
  Report Type: Spontaneous
  Country: EU (occurrence: EU)
  Receive Date: 20250715
  Receipt Date: 20250715
  Transmission Date: 20251021
  Serious: Yes (Other)
  Sender: BAYER HEALTHCARE PHARMACEUTICALS INC.
  Company Number: None

PATIENT
  Age: 43 Year
  Sex: Female

DRUGS (1)
  1. MIRENA [Suspect]
     Active Substance: LEVONORGESTREL
     Indication: Endometriosis
     Dosage: 20?G/DAY
     Route: 015
     Dates: start: 20241001, end: 202502

REACTIONS (7)
  - Depression [Recovered/Resolved]
  - Suicidal ideation [Recovered/Resolved]
  - Affective disorder [Recovered/Resolved]
  - Loss of libido [Recovered/Resolved]
  - Dizziness [Recovered/Resolved]
  - Amnesia [Recovered/Resolved]
  - Sleep disorder [Recovered/Resolved]

NARRATIVE: CASE EVENT DATE: 20241001
